FAERS Safety Report 8691793 (Version 2)
Quarter: 2012Q4

REPORT INFORMATION
  Report Type: 
  Country: DE (occurrence: DE)
  Receive Date: 20120730
  Receipt Date: 20121003
  Transmission Date: 20130627
  Serious: Yes (Other)
  Sender: FDA-Public Use
  Company Number: DE-ROCHE-1091580

PATIENT
  Age: 57 Year
  Sex: Female

DRUGS (6)
  1. ZELBORAF [Suspect]
     Indication: METASTATIC MALIGNANT MELANOMA
     Route: 065
     Dates: start: 20120626, end: 20120705
  2. ZELBORAF [Suspect]
     Dosage: 2x270 mg per day
     Route: 065
     Dates: start: 20120724
  3. TAVANIC [Concomitant]
     Route: 065
     Dates: start: 20120707, end: 20120723
  4. VALSARTAN [Concomitant]
     Route: 065
     Dates: start: 20120707
  5. PANTOZOL [Concomitant]
     Route: 065
     Dates: start: 20120707
  6. HCTZ [Concomitant]
     Route: 065
     Dates: start: 20120707

REACTIONS (7)
  - Eczema [Recovered/Resolved]
  - Pyrexia [Unknown]
  - Diarrhoea [Unknown]
  - Generalised erythema [Unknown]
  - Headache [Unknown]
  - Nausea [Unknown]
  - Vomiting [Unknown]
